FAERS Safety Report 18176471 (Version 1)
Quarter: 2020Q3

REPORT INFORMATION
  Report Type: Spontaneous
  Country: BR (occurrence: BR)
  Receive Date: 20200820
  Receipt Date: 20200820
  Transmission Date: 20201103
  Serious: Yes (Other)
  Sender: FDA-Public Use
  Company Number: BR-JNJFOC-20200828639

PATIENT

DRUGS (1)
  1. ERFANDEL [Suspect]
     Active Substance: ERDAFITINIB
     Indication: LUNG NEOPLASM MALIGNANT
     Route: 065

REACTIONS (4)
  - Hepatic enzyme abnormal [Unknown]
  - Therapeutic response unexpected [Unknown]
  - Off label use [Unknown]
  - Hepatitis B [Unknown]
